FAERS Safety Report 7552047-4 (Version None)
Quarter: 2011Q2

REPORT INFORMATION
  Report Type: 
  Country: None (occurrence: None)
  Receive Date: 20110616
  Receipt Date: 20110607
  Transmission Date: 20111010
  Serious: Yes (Other)
  Sender: FDA-Public Use
  Company Number: US-ASTRAZENECA-2011SE34842

PATIENT
  Age: 83 Year
  Sex: Female
  Weight: 68.9 kg

DRUGS (11)
  1. CYMBALTA [Suspect]
     Indication: NEUROPATHY PERIPHERAL
  2. LYRICA [Suspect]
     Route: 048
     Dates: start: 20110407
  3. LYRICA [Suspect]
     Route: 048
     Dates: start: 20110505
  4. ATENOLOL [Suspect]
     Route: 048
  5. LIDOCAINE [Suspect]
     Indication: NEUROPATHY PERIPHERAL
     Route: 062
  6. CAPSAICIN [Suspect]
     Indication: NEUROPATHY PERIPHERAL
  7. TOPROL-XL [Concomitant]
  8. LYRICA [Suspect]
     Indication: NEUROPATHY PERIPHERAL
     Route: 048
  9. LYRICA [Suspect]
     Route: 048
     Dates: start: 20110401
  10. OXYBUTYNIN [Suspect]
  11. VITAMIN TAB [Concomitant]

REACTIONS (12)
  - INSOMNIA [None]
  - ANXIETY [None]
  - ABDOMINAL PAIN UPPER [None]
  - FATIGUE [None]
  - PAIN IN EXTREMITY [None]
  - GAIT DISTURBANCE [None]
  - ATAXIA [None]
  - MYALGIA [None]
  - SOMNOLENCE [None]
  - DIZZINESS [None]
  - PAIN [None]
  - DRUG INEFFECTIVE [None]
